APPROVED DRUG PRODUCT: ZOLMITRIPTAN
Active Ingredient: ZOLMITRIPTAN
Strength: 5MG/SPRAY
Dosage Form/Route: SPRAY;NASAL
Application: A212469 | Product #002 | TE Code: AB
Applicant: PADAGIS ISRAEL PHARMACEUTICALS LTD
Approved: Sep 30, 2021 | RLD: No | RS: No | Type: RX